FAERS Safety Report 5033904-X (Version None)
Quarter: 2006Q2

REPORT INFORMATION
  Report Type: 
  Country: None (occurrence: None)
  Receive Date: 20060623
  Receipt Date: 20060605
  Transmission Date: 20061013
  Serious: Yes (Death, Life-Threatening, Hospitalization, Disabling, Other)
  Sender: FDA-Public Use
  Company Number: GT-ABBOTT-06P-069-0335325-00

PATIENT
  Sex: Male
  Weight: 17.7 kg

DRUGS (2)
  1. DEPAKENE [Suspect]
     Indication: EPILEPSY
     Route: 048
     Dates: start: 20050601, end: 20060508
  2. PHENOBARBITAL [Interacting]
     Indication: CONVULSION
     Route: 048
     Dates: start: 20050601, end: 20060508

REACTIONS (11)
  - COMA [None]
  - DRUG INTERACTION [None]
  - DRUG TOXICITY [None]
  - GASTROINTESTINAL HAEMORRHAGE [None]
  - HEPATIC ENCEPHALOPATHY [None]
  - HEPATIC FAILURE [None]
  - HEPATOCELLULAR DAMAGE [None]
  - LIVER DISORDER [None]
  - LUNG INFECTION [None]
  - OVERDOSE [None]
  - RENAL FAILURE ACUTE [None]
